FAERS Safety Report 8172649 (Version 3)
Quarter: 2013Q3

REPORT INFORMATION
  Report Type: Spontaneous
  Country: AT (occurrence: AT)
  Receive Date: 20111007
  Receipt Date: 20130819
  Transmission Date: 20140515
  Serious: Yes (Life-Threatening, Hospitalization)
  Sender: FDA-Public Use
  Company Number: AT-SANOFI-AVENTIS-2011SA064341

PATIENT
  Age: 69 Year
  Sex: Female
  Weight: 72 kg

DRUGS (8)
  1. MULTAQ [Suspect]
     Indication: ATRIAL FIBRILLATION
     Route: 048
     Dates: start: 201009, end: 20110829
  2. LISINOPRIL [Suspect]
     Indication: ATRIAL FIBRILLATION
     Route: 048
     Dates: start: 201009, end: 20110829
  3. MARCOUMAR [Suspect]
     Indication: ATRIAL FIBRILLATION
     Route: 048
     Dates: start: 201012, end: 20110829
  4. CALVITA [Concomitant]
     Route: 048
     Dates: end: 20110829
  5. CHONDROSULF [Concomitant]
     Route: 048
     Dates: end: 20110829
  6. ALL OTHER THERAPEUTIC PRODUCTS [Concomitant]
     Route: 048
     Dates: start: 2006, end: 20110829
  7. ALL OTHER THERAPEUTIC PRODUCTS [Concomitant]
     Route: 048
     Dates: end: 20110829
  8. FORSTEO [Concomitant]
     Indication: OSTEOPOROSIS
     Route: 058
     Dates: start: 201006, end: 20110829

REACTIONS (14)
  - Drug-induced liver injury [Recovered/Resolved]
  - Asthenia [Recovered/Resolved]
  - Malaise [Recovered/Resolved]
  - Abdominal pain [Recovered/Resolved]
  - Jaundice [Recovered/Resolved]
  - Alanine aminotransferase increased [Recovered/Resolved]
  - Aspartate aminotransferase increased [Recovered/Resolved]
  - Blood bilirubin increased [Recovered/Resolved]
  - Gamma-glutamyltransferase increased [Recovered/Resolved]
  - Blood alkaline phosphatase increased [Recovered/Resolved]
  - Hepatic encephalopathy [Recovered/Resolved]
  - Nausea [Recovered/Resolved]
  - Fatigue [Recovered/Resolved]
  - Acute hepatic failure [Recovered/Resolved]
